FAERS Safety Report 11870033 (Version 1)
Quarter: 2015Q4

REPORT INFORMATION
  Report Type: Other
  Country: CA (occurrence: CA)
  Receive Date: 20151228
  Receipt Date: 20151228
  Transmission Date: 20160305
  Serious: Yes (Hospitalization)
  Sender: FDA-Public Use
  Company Number: CA-APOTEX-2015AP015435

PATIENT
  Age: 20 Year
  Sex: Male

DRUGS (3)
  1. APO-QUETIAPINE [Suspect]
     Active Substance: QUETIAPINE
     Indication: BIPOLAR DISORDER
     Route: 065
  2. APO-TEMAZEPAM [Suspect]
     Active Substance: TEMAZEPAM
     Indication: BIPOLAR DISORDER
     Route: 065
  3. PAXIL [Suspect]
     Active Substance: PAROXETINE HYDROCHLORIDE
     Indication: BIPOLAR DISORDER
     Route: 065

REACTIONS (13)
  - Fear [Unknown]
  - Weight fluctuation [Unknown]
  - Erectile dysfunction [Unknown]
  - Fatigue [Unknown]
  - Depression [Unknown]
  - Impulsive behaviour [Unknown]
  - Anxiety [Unknown]
  - Hair transplant [Unknown]
  - Borderline personality disorder [Unknown]
  - Increased appetite [Unknown]
  - Sleep disorder [Unknown]
  - Hallucination, auditory [Unknown]
  - Sexually transmitted disease [Unknown]
